FAERS Safety Report 9205718 (Version 1)
Quarter: 2013Q2

REPORT INFORMATION
  Report Type: Spontaneous
  Country: GB (occurrence: GB)
  Receive Date: 20130403
  Receipt Date: 20130403
  Transmission Date: 20140414
  Serious: Yes (Death, Other)
  Sender: FDA-Public Use
  Company Number: GB-AMGEN-GBRSP2013022771

PATIENT
  Age: 71 Year
  Sex: Female
  Weight: 90 kg

DRUGS (12)
  1. ENBREL [Suspect]
     Indication: RHEUMATOID ARTHRITIS
     Dosage: 50 MG, WEEKLY
     Route: 058
     Dates: start: 201008, end: 201108
  2. METHOTREXATE SODIUM [Suspect]
     Indication: RHEUMATOID ARTHRITIS
     Dosage: 10 MG, WEEKLY
     Route: 048
     Dates: start: 2007, end: 201301
  3. HUMIRA [Suspect]
     Indication: RHEUMATOID ARTHRITIS
     Dosage: 40 MG, 1 / 2WEEKS
     Route: 058
     Dates: start: 200803, end: 201006
  4. MABTHERA [Suspect]
     Indication: RHEUMATOID ARTHRITIS
     Dosage: 1000 MG, TWO 1000MG INFUSIONS TWO WEEKS APART 2TOTAL
     Dates: start: 20120229, end: 20120314
  5. RAMIPRIL [Concomitant]
     Indication: HYPERTENSION
     Dosage: 2.5 MG, LONG TERM
     Route: 048
     Dates: start: 2007, end: 201302
  6. PREDNISOLONE [Concomitant]
     Indication: RHEUMATOID ARTHRITIS
     Dosage: 5 MG, LONG TERM
     Route: 048
     Dates: start: 2007, end: 201302
  7. LEVOTHYROXINE [Concomitant]
     Indication: HYPOTHYROIDISM
     Dosage: 75 UG, LONG TERM
     Route: 048
     Dates: start: 2007, end: 201302
  8. OMEPRAZOLE [Concomitant]
     Indication: GASTROOESOPHAGEAL REFLUX DISEASE
     Dosage: 20 MG, LONG TERM
     Route: 048
     Dates: start: 2007, end: 201302
  9. ADCAL D3 [Concomitant]
     Indication: VITAMIN D DECREASED
     Dosage: 1 DF, 2X/DAY, LONG TERM
     Route: 048
     Dates: start: 2007, end: 201302
  10. ADCAL D3 [Concomitant]
     Dosage: UNK
  11. ACETYLSALICYLIC ACID [Concomitant]
     Dosage: 75 MG, 1X/DAY, LONG TERM
     Route: 048
     Dates: start: 2007, end: 201302
  12. CO-DYDRAMOL [Concomitant]
     Dosage: 2 DF, 4X/DAY, LONG TERM
     Route: 048
     Dates: start: 2007, end: 201302

REACTIONS (1)
  - Malignant neoplasm of unknown primary site [Fatal]
